FAERS Safety Report 11226945 (Version 1)
Quarter: 2015Q2

REPORT INFORMATION
  Report Type: Spontaneous
  Country: GB (occurrence: GB)
  Receive Date: 20150630
  Receipt Date: 20150630
  Transmission Date: 20150821
  Serious: Yes (Other)
  Sender: FDA-Public Use
  Company Number: GB-AMGEN-GBRSP2015027754

PATIENT
  Age: 60 Year
  Sex: Female
  Weight: 68 kg

DRUGS (20)
  1. DIORALYTE                          /01427901/ [Concomitant]
     Dosage: DISSOLVE ONE SACHET IN 200ML OF WATER AND TAKE AS OFTEN AS DIRECTED
  2. ZAPAIN [Concomitant]
     Active Substance: ACETAMINOPHEN\CODEINE PHOSPHATE
     Dosage: 30MG/500MG TABLETS 1 TO 2 FOUR TIMES A DAY
  3. CARDIOPLEN XL [Concomitant]
     Indication: BLOOD PRESSURE
     Dosage: 5 MG, 1X/DAY IN MORNING
  4. FOLIC ACID. [Concomitant]
     Active Substance: FOLIC ACID
     Dosage: 5 MG, 1X/DAY
  5. FENBID [Concomitant]
     Active Substance: IBUPROFEN
     Dosage: UNK, APPLY TO AFFECTED AREAS THREE TIMES A DAY
  6. CLOTRIMAZOLE. [Concomitant]
     Active Substance: CLOTRIMAZOLE
     Dosage: UNK, TO BE USED AS DIRECTED
  7. CLOTRIMAZOLE. [Concomitant]
     Active Substance: CLOTRIMAZOLE
     Dosage: UNK, TO BE USED AS DIRECTED
  8. AMOXICILLIN. [Concomitant]
     Active Substance: AMOXICILLIN
     Dosage: 500 MG, 1X/DAY
  9. MONTELUKAST SODIUM. [Concomitant]
     Active Substance: MONTELUKAST SODIUM
     Indication: DYSPNOEA
     Dosage: 10 MG, UNK
  10. OMEPRAZOLE. [Concomitant]
     Active Substance: OMEPRAZOLE
     Indication: GASTROOESOPHAGEAL REFLUX DISEASE
     Dosage: 20 MG, 1X/DAY
  11. CETIRIZINE [Concomitant]
     Active Substance: CETIRIZINE HYDROCHLORIDE
     Dosage: 10 MG, 1X/DAY
  12. FLUTICASONE [Concomitant]
     Active Substance: FLUTICASONE\FLUTICASONE PROPIONATE
     Dosage: 50 MUG, 2 PUFFS ONCE DAILY
  13. INTAL [Concomitant]
     Active Substance: CROMOLYN SODIUM
     Dosage: 1 DF, 4X/DAY IN THE AFFECTED EYE(S)
  14. MONTELUKAST [Concomitant]
     Active Substance: MONTELUKAST SODIUM
     Dosage: 10 MG, 1X/DAY, AS NEEDED
  15. ENBREL [Suspect]
     Active Substance: ETANERCEPT
     Indication: RHEUMATOID ARTHRITIS
     Dosage: 10 MG, WEEKLY
     Route: 065
     Dates: start: 201503
  16. LEFLUMIDE [Concomitant]
     Indication: RHEUMATOID ARTHRITIS
     Dosage: 10 MG, 2X/DAY
  17. SIMVASTATIN. [Concomitant]
     Active Substance: SIMVASTATIN
     Dosage: 20 MG, 1X/DAY, AT NIGHT
  18. SNO TEARS [Concomitant]
     Dosage: 40 UNK, TO BE USED AS REQUIRED
  19. VENTOLIN [Concomitant]
     Active Substance: ALBUTEROL SULFATE
     Dosage: INHALE 2 DOSES AS NEEDED
  20. GLANDOSANE                         /01287301/ [Concomitant]
     Dosage: UNK, AS REQUIRED

REACTIONS (11)
  - Vomiting [Recovered/Resolved]
  - Fatigue [Recovered/Resolved]
  - Dry mouth [Recovered/Resolved]
  - Deep vein thrombosis [Unknown]
  - Diarrhoea [Recovered/Resolved]
  - Injection site swelling [Recovered/Resolved]
  - Injection site warmth [Recovered/Resolved]
  - Nausea [Recovered/Resolved]
  - Injection site pruritus [Recovered/Resolved]
  - Viral infection [Recovered/Resolved]
  - Sinusitis [Unknown]

NARRATIVE: CASE EVENT DATE: 2015
